FAERS Safety Report 8443139-6 (Version None)
Quarter: 2012Q2

REPORT INFORMATION
  Report Type: 
  Country: None (occurrence: None)
  Receive Date: 20120615
  Receipt Date: 20120607
  Transmission Date: 20120825
  Serious: Yes (Hospitalization, Other)
  Sender: FDA-Public Use
  Company Number: US-MERCK-1206USA01218

PATIENT
  Age: 79 Year
  Sex: Female
  Weight: 56 kg

DRUGS (14)
  1. PLAVIX [Concomitant]
     Route: 065
  2. NORPACE [Suspect]
     Indication: ATRIAL FIBRILLATION
     Route: 048
  3. NORPACE [Suspect]
     Indication: ATRIAL FIBRILLATION
     Route: 048
  4. UBIDECARENONE [Concomitant]
     Route: 065
  5. CALCITONIN [Concomitant]
     Route: 065
  6. MULTAQ [Suspect]
     Indication: ATRIAL FIBRILLATION
     Route: 065
     Dates: start: 20090101
  7. COZAAR [Suspect]
     Route: 048
  8. NORPACE [Suspect]
     Route: 048
  9. LEVOTHYROXINE SODIUM [Concomitant]
     Route: 065
  10. PRADAXA [Concomitant]
     Route: 065
  11. NORPACE [Suspect]
     Route: 048
  12. AMIODARONE HCL [Suspect]
     Route: 065
  13. PRILOSEC [Concomitant]
     Route: 048
  14. CARDIZEM [Concomitant]
     Route: 065

REACTIONS (9)
  - THORACIC VERTEBRAL FRACTURE [None]
  - FALL [None]
  - ANAEMIA [None]
  - PAIN [None]
  - BLOOD CHOLESTEROL INCREASED [None]
  - DRY MOUTH [None]
  - FEMUR FRACTURE [None]
  - HIP FRACTURE [None]
  - ADVERSE REACTION [None]
